FAERS Safety Report 5799855-8 (Version None)
Quarter: 2008Q3

REPORT INFORMATION
  Report Type: 
  Country: None (occurrence: None)
  Receive Date: 20080703
  Receipt Date: 20080625
  Transmission Date: 20090109
  Serious: Yes (Other)
  Sender: FDA-Public Use
  Company Number: US-ASTRAZENECA-2008AC00880

PATIENT
  Age: 60 Year
  Sex: Male

DRUGS (2)
  1. CANDESARTAN [Suspect]
  2. 3 ANTIHYPERTENSIVE AGENTS [Concomitant]

REACTIONS (2)
  - HYPERPARATHYROIDISM SECONDARY [None]
  - RENAL FAILURE [None]
